FAERS Safety Report 4479026-8 (Version None)
Quarter: 2004Q4

REPORT INFORMATION
  Report Type: 
  Country: None (occurrence: None)
  Receive Date: 20041015
  Receipt Date: 20040929
  Transmission Date: 20050328
  Serious: Yes (Hospitalization)
  Sender: FDA-Public Use
  Company Number: 104959ISR

PATIENT
  Age: 40 Year
  Sex: Male

DRUGS (4)
  1. CARBOPLATIN [Suspect]
     Dosage: 40 MILLIGRAM INTRAVENOUS NOS
     Route: 042
     Dates: start: 20040628, end: 20040628
  2. FLUOROURACIL [Suspect]
     Dosage: 80 MILLIGRAM INTRAVENOUS NOS
     Route: 042
     Dates: start: 20040628, end: 20040628
  3. ALIZAPRIDE HYDROCHLORIDE [Suspect]
     Dosage: INTRAVENOUS NOS
     Route: 042
     Dates: start: 20040628, end: 20040628
  4. GRANISETRON [Suspect]
     Dosage: INTRAVENOUS NOS
     Route: 042
     Dates: start: 20040628, end: 20410628

REACTIONS (8)
  - DRUG HYPERSENSITIVITY [None]
  - DYSPNOEA [None]
  - HYPERHIDROSIS [None]
  - INFUSION RELATED REACTION [None]
  - PAIN [None]
  - PARAESTHESIA [None]
  - SYNCOPE [None]
  - VOMITING [None]
